FAERS Safety Report 9375148 (Version 2)
Quarter: 2013Q3

REPORT INFORMATION
  Report Type: Spontaneous
  Country: US (occurrence: US)
  Receive Date: 20130628
  Receipt Date: 20130731
  Transmission Date: 20140515
  Serious: No
  Sender: FDA-Public Use
  Company Number: US-009507513-1306USA005132

PATIENT
  Sex: Male
  Weight: 72.56 kg

DRUGS (3)
  1. VICTRELIS [Suspect]
     Dosage: 800 MG, Q8H
     Route: 048
     Dates: start: 20130408
  2. PEGASYS [Suspect]
     Dosage: 180 MCG/M
  3. RIBAPAK [Suspect]
     Dosage: 600/DAY

REACTIONS (4)
  - Pruritus [Unknown]
  - Rash generalised [Unknown]
  - Fatigue [Unknown]
  - Rash [Unknown]
